FAERS Safety Report 4331239-1 (Version None)
Quarter: 2004Q1

REPORT INFORMATION
  Report Type: 
  Country: None (occurrence: None)
  Receive Date: 20040331
  Receipt Date: 20040317
  Transmission Date: 20041129
  Serious: Yes (Hospitalization)
  Sender: FDA-Public Use
  Company Number: 2004016011

PATIENT
  Age: 64 Year
  Sex: Female
  Weight: 65 kg

DRUGS (6)
  1. ZELDOX (CAPSULES) (ZIPRASIDONE) [Suspect]
     Indication: SCHIZOPHRENIA
     Dosage: 80 MG, ORAL
     Route: 048
     Dates: start: 20031210, end: 20040302
  2. ETILEFRINE HYDROCHLORIDE (ETILEFRINE HYDROCHLORIDE) [Suspect]
     Indication: HYPOTENSION
     Dosage: ORAL
     Route: 048
     Dates: start: 20040227, end: 20040302
  3. METHYLPREDNISOLONE [Suspect]
     Indication: EXANTHEM
     Dosage: 40 MG
  4. CLEMASTINE (CLEMASTINE) [Suspect]
     Indication: EXANTHEM
  5. MELPERONE (MELPERONE) [Concomitant]
  6. LYOGEN DEPOT (FLUPHENAZINE) [Concomitant]

REACTIONS (2)
  - DERMATITIS EXFOLIATIVE [None]
  - VASCULITIS [None]
